FAERS Safety Report 5728774-8 (Version None)
Quarter: 2008Q2

REPORT INFORMATION
  Report Type: 
  Country: None (occurrence: None)
  Receive Date: 20080506
  Receipt Date: 20080505
  Transmission Date: 20081010
  Serious: Yes (Hospitalization)
  Sender: FDA-Public Use
  Company Number: B0519165A

PATIENT
  Age: 71 Year
  Sex: Female
  Weight: 112 kg

DRUGS (10)
  1. DUOMOX [Suspect]
     Indication: TRACHEITIS
     Dosage: 1000MG TWICE PER DAY
     Route: 048
     Dates: start: 20080229, end: 20080303
  2. ISRADIPINE [Concomitant]
  3. VEROSPIRON [Concomitant]
  4. OMEPRAZOLE [Concomitant]
     Dates: start: 20080310, end: 20080312
  5. ALLOPURINOL [Concomitant]
  6. SORTIS [Concomitant]
  7. BISOPROLOL FUMARATE [Concomitant]
  8. LOSARTAN POTASSIUM [Concomitant]
  9. MEDROL [Concomitant]
  10. NIMESIL [Concomitant]

REACTIONS (3)
  - ABDOMINAL DISCOMFORT [None]
  - RENAL FAILURE ACUTE [None]
  - TUBULOINTERSTITIAL NEPHRITIS [None]
